FAERS Safety Report 6423251-3 (Version None)
Quarter: 2009Q4

REPORT INFORMATION
  Report Type: 
  Country: None (occurrence: None)
  Receive Date: 20091102
  Receipt Date: 20091030
  Transmission Date: 20100525
  Serious: Yes (Hospitalization)
  Sender: FDA-Public Use
  Company Number: GXKR2009DE11869

PATIENT
  Age: 80 Year
  Sex: Female
  Weight: 86 kg

DRUGS (3)
  1. PREDNISOLONE [Suspect]
     Indication: MULTIPLE MYELOMA
     Dosage: 100 MG, QD
     Route: 048
     Dates: start: 20090827, end: 20090830
  2. MELPHALAN [Suspect]
     Indication: MULTIPLE MYELOMA
     Dosage: 9 MG, QD
     Route: 048
     Dates: start: 20090827, end: 20090830
  3. VELCADE [Suspect]
     Indication: MULTIPLE MYELOMA
     Dosage: UNK
     Route: 042
     Dates: start: 20090827, end: 20090907

REACTIONS (1)
  - PANCYTOPENIA [None]
